FAERS Safety Report 13932450 (Version 2)
Quarter: 2018Q1

REPORT INFORMATION
  Report Type: Report from Study
  Country: US (occurrence: US)
  Receive Date: 20170904
  Receipt Date: 20180312
  Transmission Date: 20180508
  Serious: Yes (Other)
  Sender: FDA-Public Use
  Company Number: US-ROCHE-1986456

PATIENT
  Sex: Female

DRUGS (6)
  1. HEPARIN [Suspect]
     Active Substance: HEPARIN SODIUM
     Indication: ISCHAEMIA
     Dosage: 500 U/HOUR
     Route: 013
  2. HEPARIN [Suspect]
     Active Substance: HEPARIN SODIUM
     Indication: POOR PERIPHERAL CIRCULATION
  3. ALTEPLASE. [Suspect]
     Active Substance: ALTEPLASE
     Indication: POOR PERIPHERAL CIRCULATION
     Dosage: 0.5 TO 1.0 MG/H
     Route: 013
  4. ALTEPLASE. [Suspect]
     Active Substance: ALTEPLASE
     Indication: FROSTBITE
  5. ALTEPLASE. [Suspect]
     Active Substance: ALTEPLASE
     Indication: ISCHAEMIA
  6. HEPARIN [Suspect]
     Active Substance: HEPARIN SODIUM
     Indication: FROSTBITE

REACTIONS (4)
  - Retroperitoneal haematoma [Recovered/Resolved]
  - Product use issue [Unknown]
  - Off label use [Unknown]
  - Intentional product use issue [Unknown]
